FAERS Safety Report 12923133 (Version 1)
Quarter: 2016Q4

REPORT INFORMATION
  Report Type: Spontaneous
  Country: US (occurrence: US)
  Receive Date: 20161109
  Receipt Date: 20161109
  Transmission Date: 20170207
  Serious: No
  Sender: FDA-Public Use
  Company Number: None

PATIENT

DRUGS (2)
  1. GEMFIBROZIL. [Suspect]
     Active Substance: GEMFIBROZIL
     Dosage: GEMFIBROZIL - - DOSAGE FORM - TABLET - PO - BOTTLE OF 500 TABLETS
     Route: 048
  2. GABAPENTIN. [Suspect]
     Active Substance: GABAPENTIN
     Dosage: GABAPENTIN - TABLET [BOTTLE OF 500 TABLETS] - PO
     Route: 048

REACTIONS (4)
  - Product label confusion [None]
  - Drug dispensing error [None]
  - Product dosage form confusion [None]
  - Wrong drug administered [None]
